FAERS Safety Report 5224936-7 (Version None)
Quarter: 2007Q1

REPORT INFORMATION
  Report Type: 
  Country: None (occurrence: None)
  Receive Date: 20070126
  Receipt Date: 20070111
  Transmission Date: 20070707
  Serious: Yes (Hospitalization)
  Sender: FDA-Public Use
  Company Number: GXKR2007JP00716

PATIENT
  Age: 65 Year
  Sex: Female

DRUGS (4)
  1. ETODOLAC [Suspect]
     Indication: RHEUMATOID ARTHRITIS
     Dosage: 400 MG, QD,
  2. PREDNISOLONE [Suspect]
     Indication: RHEUMATOID ARTHRITIS
     Dosage: 4MG, QD,
  3. METHOTREXATE [Suspect]
     Indication: RHEUMATOID ARTHRITIS
     Dosage: 6MG, QW,
  4. FAMOTIDINE [Concomitant]

REACTIONS (7)
  - CHEST PAIN [None]
  - DYSPNOEA [None]
  - GASTRIC ULCER PERFORATION [None]
  - GASTROINTESTINAL FISTULA [None]
  - PLEURAL EFFUSION [None]
  - PLEURAL FISTULA [None]
  - PNEUMOTHORAX [None]
